FAERS Safety Report 5826672-2 (Version None)
Quarter: 2008Q3

REPORT INFORMATION
  Report Type: 
  Country: None (occurrence: None)
  Receive Date: 20080730
  Receipt Date: 20080317
  Transmission Date: 20090109
  Serious: No
  Sender: FDA-Public Use
  Company Number: US-BAYER-200811259BCC

PATIENT
  Age: 40 Year
  Sex: Female
  Weight: 58 kg

DRUGS (4)
  1. ALEVE COLD AND SINUS [Suspect]
     Indication: SINUS DISORDER
     Dosage: UNIT DOSE: 220 MG
     Route: 048
     Dates: start: 20080317
  2. YAZ [Concomitant]
  3. METFORMIN HCL [Concomitant]
  4. ALLEGRA [Concomitant]

REACTIONS (1)
  - FATIGUE [None]
